FAERS Safety Report 11364409 (Version 1)
Quarter: 2015Q3

REPORT INFORMATION
  Report Type: Spontaneous
  Country: US (occurrence: None)
  Receive Date: 20150810
  Receipt Date: 20150810
  Transmission Date: 20151125
  Serious: Yes (Other)
  Sender: FDA-Public Use
  Company Number: None

PATIENT
  Age: 36 Year
  Weight: 58.97 kg

DRUGS (1)
  1. ADDERALL [Suspect]
     Active Substance: AMPHETAMINE ASPARTATE\AMPHETAMINE SULFATE\DEXTROAMPHETAMINE SACCHARATE\DEXTROAMPHETAMINE SULFATE
     Indication: ATTENTION DEFICIT/HYPERACTIVITY DISORDER

REACTIONS (5)
  - Chest discomfort [None]
  - Dyspnoea [None]
  - Musculoskeletal chest pain [None]
  - Product quality issue [None]
  - Chest pain [None]

NARRATIVE: CASE EVENT DATE: 20150717
